FAERS Safety Report 8767560 (Version 4)
Quarter: 2013Q3

REPORT INFORMATION
  Report Type: Report from Study
  Country: JP (occurrence: JP)
  Receive Date: 20120904
  Receipt Date: 20130920
  Transmission Date: 20140515
  Serious: Yes (Other)
  Sender: FDA-Public Use
  Company Number: JP-VERTEX PHARMACEUTICAL INC.-AE-2012-001321

PATIENT
  Age: 66 Year
  Sex: Male

DRUGS (11)
  1. VX-950 (TELAPREVIR) [Suspect]
     Indication: CHRONIC HEPATITIS C
     Dosage: 2250 MG, QD
     Route: 048
     Dates: start: 20120118, end: 20120123
  2. PEGINTRON [Suspect]
     Indication: CHRONIC HEPATITIS C
     Dosage: 1.5 ?G/KG, WEEKLY
     Route: 058
     Dates: start: 20120118
  3. REBETOL [Suspect]
     Indication: CHRONIC HEPATITIS C
     Dosage: 800 MG, QD
     Route: 048
     Dates: start: 20120118, end: 20120410
  4. REBETOL [Suspect]
     Dosage: 400 MG, QD
     Route: 048
     Dates: start: 20120411, end: 20120424
  5. REBETOL [Suspect]
     Dosage: 600 MG, QD
     Route: 048
     Dates: start: 20120425, end: 20121219
  6. DEPAS [Concomitant]
     Dosage: 0.5 MG, PRN
     Route: 048
     Dates: start: 20120118, end: 20120409
  7. VOLTAREN [Concomitant]
     Dosage: 25 MG, PRN
     Route: 048
     Dates: start: 20120119, end: 20120125
  8. FAMOTIDINE D [Concomitant]
     Route: 048
     Dates: start: 20120118
  9. CELECOX [Concomitant]
     Dosage: 100 MG, PRN
     Route: 048
     Dates: start: 20120120, end: 20120215
  10. GASMOTIN [Concomitant]
     Dosage: 15 MG, QD
     Route: 048
     Dates: start: 20120123
  11. GASMOTIN [Concomitant]
     Dosage: 15 MG, PRN
     Route: 048

REACTIONS (4)
  - Purpura [Recovered/Resolved]
  - Haemorrhage subcutaneous [Recovered/Resolved]
  - White blood cell count decreased [Recovered/Resolved]
  - Anaemia [Recovered/Resolved]
